FAERS Safety Report 4353648-7 (Version None)
Quarter: 2004Q2

REPORT INFORMATION
  Report Type: 
  Country: None (occurrence: None)
  Receive Date: 20040430
  Receipt Date: 20040422
  Transmission Date: 20050107
  Serious: Yes (Death, Hospitalization)
  Sender: FDA-Public Use
  Company Number: 2004205562JP

PATIENT
  Age: 87 Year
  Sex: Male

DRUGS (1)
  1. HALCION [Suspect]
     Indication: INSOMNIA
     Dosage: 0.125 MG/DAY , ORAL
     Route: 048
     Dates: start: 20000101, end: 20040101

REACTIONS (6)
  - BEDRIDDEN [None]
  - CONTUSION [None]
  - FALL [None]
  - FRACTURED COCCYX [None]
  - SPINAL FRACTURE [None]
  - SUBDURAL HAEMATOMA [None]
